FAERS Safety Report 9045953 (Version 1)
Quarter: 2013Q1

REPORT INFORMATION
  Report Type: Spontaneous
  Country: US (occurrence: US)
  Receive Date: 20130201
  Receipt Date: 20130201
  Transmission Date: 20140127
  Serious: No
  Sender: FDA-Public Use
  Company Number: US-ABBOTT-12P-163-1019260-00

PATIENT
  Age: 44 None
  Sex: Female
  Weight: 108.96 kg

DRUGS (2)
  1. HUMIRA [Suspect]
     Indication: RHEUMATOID ARTHRITIS
     Route: 058
     Dates: start: 2010
  2. HYDROCHLOROTHIAZIDE [Concomitant]
     Indication: HYPERTENSION

REACTIONS (4)
  - Device malfunction [Recovered/Resolved]
  - Injection site bruising [Recovering/Resolving]
  - Injection site pain [Recovered/Resolved]
  - Incorrect dose administered [Recovered/Resolved]
